FAERS Safety Report 9829324 (Version 2)
Quarter: 2014Q1

REPORT INFORMATION
  Report Type: Spontaneous
  Country: JP (occurrence: JP)
  Receive Date: 20140120
  Receipt Date: 20140206
  Transmission Date: 20141002
  Serious: Yes (Death)
  Sender: FDA-Public Use
  Company Number: JP-ROCHE-1335778

PATIENT
  Age: 61 Year
  Sex: Male
  Weight: 57 kg

DRUGS (11)
  1. ALTEPLASE [Suspect]
     Indication: CEREBRAL INFARCTION
     Dosage: QD
     Route: 042
     Dates: start: 20140113, end: 20140113
  2. AMIODARONE HYDROCHLORIDE [Concomitant]
  3. BAYASPIRIN [Concomitant]
     Route: 065
     Dates: end: 20140113
  4. ENALAPRIL [Concomitant]
     Route: 065
     Dates: end: 20140113
  5. PARIET [Concomitant]
  6. PLAVIX [Concomitant]
     Route: 065
     Dates: end: 20140113
  7. SELARA [Concomitant]
     Route: 065
     Dates: end: 20140113
  8. FUROSEMIDE [Concomitant]
     Route: 065
     Dates: end: 20140113
  9. MAINTATE [Concomitant]
     Route: 065
     Dates: end: 20140113
  10. SENNOSIDE [Concomitant]
     Route: 048
  11. ATORVASTATIN [Concomitant]
     Route: 065
     Dates: end: 20140113

REACTIONS (2)
  - Respiratory disorder [Fatal]
  - Acute pulmonary oedema [Fatal]
